FAERS Safety Report 6763594-7 (Version None)
Quarter: 2010Q2

REPORT INFORMATION
  Report Type: 
  Country: None (occurrence: None)
  Receive Date: 20100610
  Receipt Date: 20100601
  Transmission Date: 20101027
  Serious: Yes (Hospitalization)
  Sender: FDA-Public Use
  Company Number: US-ELI_LILLY_AND_COMPANY-US201004000171

PATIENT
  Sex: Male
  Weight: 118.37 kg

DRUGS (11)
  1. BYETTA [Suspect]
     Indication: TYPE 2 DIABETES MELLITUS
     Dosage: 5 UG, 2/D
     Dates: start: 20070725, end: 20070924
  2. BYETTA [Suspect]
     Dosage: 10 UG, 2/D
     Dates: start: 20070924, end: 20100324
  3. LOVAZA [Concomitant]
  4. ACTOS /SCH/ [Concomitant]
     Dosage: 1 D/F, DAILY (1/D)
     Route: 048
  5. SERTRALINE HYDROCHLORIDE [Concomitant]
     Dosage: 1 D/F, DAILY (1/D)
     Route: 048
  6. LYRICA [Concomitant]
     Dosage: 1 D/F, 3/D
     Route: 048
  7. TEMAZEPAM [Concomitant]
     Dosage: 1 D/F, EACH EVENING
     Route: 048
  8. AVALIDE [Concomitant]
     Dosage: 1 D/F, DAILY (1/D)
     Route: 048
  9. METFORMIN HCL [Concomitant]
     Dosage: 1000 MG, 2/D
     Route: 048
  10. GLYBURIDE [Concomitant]
     Dosage: 2.5 MG, DAILY (1/D)
     Route: 048
  11. ASPIRIN [Concomitant]
     Dosage: 325 MG, DAILY (1/D)
     Route: 048

REACTIONS (2)
  - PANCREATITIS [None]
  - WEIGHT DECREASED [None]
